FAERS Safety Report 16801794 (Version 1)
Quarter: 2019Q3

REPORT INFORMATION
  Report Type: Spontaneous
  Country: US (occurrence: US)
  Receive Date: 20190912
  Receipt Date: 20190912
  Transmission Date: 20191005
  Serious: No
  Sender: FDA-Public Use
  Company Number: US-BAYER-2019-161936

PATIENT
  Age: 25 Year
  Sex: Male

DRUGS (1)
  1. GADAVIST [Suspect]
     Active Substance: GADOBUTROL
     Dosage: UNK

REACTIONS (5)
  - Headache [None]
  - Muscle twitching [None]
  - Contrast media deposition [None]
  - Visual impairment [None]
  - Tinnitus [None]
